FAERS Safety Report 9452691 (Version 2)
Quarter: 2013Q3

REPORT INFORMATION
  Report Type: Spontaneous
  Country: US (occurrence: None)
  Receive Date: 20130807
  Receipt Date: 20130814
  Transmission Date: 20140515
  Serious: Yes (Other)
  Sender: FDA-Public Use
  Company Number: ADR-2013-00764

PATIENT
  Sex: Male

DRUGS (1)
  1. LIORESAL INTRATHECAL [Suspect]
     Indication: MUSCLE SPASTICITY
     Dosage: 112.28MCG/DAY, SEE B5

REACTIONS (8)
  - Dizziness [None]
  - Sensation of heaviness [None]
  - Muscle spasticity [None]
  - Drug ineffective [None]
  - Medical device complication [None]
  - Pain [None]
  - Tinnitus [None]
  - Device alarm issue [None]
